FAERS Safety Report 8311433-5 (Version None)
Quarter: 2012Q1

REPORT INFORMATION
  Report Type: 
  Country: None (occurrence: None)
  Receive Date: 20120315
  Receipt Date: 20101020
  Transmission Date: 20120608
  Serious: No
  Sender: FDA-Public Use
  Company Number: PHHY2010US70708

PATIENT
  Age: 44 Year
  Sex: Female

DRUGS (4)
  1. GILENYA [Suspect]
     Indication: MULTIPLE SCLEROSIS
     Dosage: 0.5 MG, QD, ORAL
     Route: 048
  2. ADDERALL XR 20 [Concomitant]
  3. PREMARIN [Concomitant]
  4. CARISOPRODOL (CARISOPRODOL) [Concomitant]

REACTIONS (2)
  - FATIGUE [None]
  - HEART RATE DECREASED [None]
